FAERS Safety Report 13837844 (Version 1)
Quarter: 2017Q3

REPORT INFORMATION
  Report Type: Spontaneous
  Country: US (occurrence: US)
  Receive Date: 20170806
  Receipt Date: 20170806
  Transmission Date: 20171127
  Serious: No
  Sender: FDA-Public Use
  Company Number: GXBR2017US001930

PATIENT
  Age: 35 Year
  Sex: Female
  Weight: 43.99 kg

DRUGS (2)
  1. TRIAMCINOLONE ACETONIDE. [Suspect]
     Active Substance: TRIAMCINOLONE ACETONIDE
     Indication: SKIN IRRITATION
     Dosage: 1 DF, UNK (APPLY UP TO 3 TIMES DAILY)
     Route: 061
     Dates: start: 20170608, end: 20170608
  2. ADVIL [Concomitant]
     Active Substance: IBUPROFEN
     Indication: PRODUCT USED FOR UNKNOWN INDICATION
     Dosage: 2 DF, UNK (EVERY 4 TO 6 HOURS)
     Route: 065
     Dates: start: 20170608

REACTIONS (9)
  - Skin discolouration [Not Recovered/Not Resolved]
  - Genital pain [Not Recovered/Not Resolved]
  - Erythema [Not Recovered/Not Resolved]
  - Thermal burn [Not Recovered/Not Resolved]
  - Inflammation [Not Recovered/Not Resolved]
  - Skin erosion [Not Recovered/Not Resolved]
  - Skin haemorrhage [Not Recovered/Not Resolved]
  - Genital infection [Not Recovered/Not Resolved]
  - Wound secretion [Not Recovered/Not Resolved]

NARRATIVE: CASE EVENT DATE: 20170608
